FAERS Safety Report 7397951 (Version 3)
Quarter: 2012Q4

REPORT INFORMATION
  Report Type: 
  Country: US (occurrence: US)
  Receive Date: 20100524
  Receipt Date: 20121214
  Transmission Date: 20130627
  Serious: Yes (Death)
  Sender: FDA-Public Use
  Company Number: US-MILLENNIUM PHARMACEUTICALS, INC.-2010-02394

PATIENT
  Age: 62 Year
  Sex: Female
  Weight: 89.2 kg

DRUGS (6)
  1. VELCADE [Suspect]
     Indication: MULTIPLE MYELOMA
     Dosage: 1.6 mg/m2, Cyclic
     Route: 042
     Dates: start: 20100412, end: 20100419
  2. DEXAMETHASONE [Suspect]
     Indication: MULTIPLE MYELOMA
     Dosage: 40 mg, Cyclic
     Route: 048
     Dates: start: 20100412, end: 20100419
  3. DOXIL [Suspect]
     Indication: MULTIPLE MYELOMA
     Dosage: 30 mg/m2, Cyclic
     Route: 042
     Dates: start: 20100419, end: 20100419
  4. CYCLOPHOSPHAMIDE [Suspect]
     Indication: MULTIPLE MYELOMA
     Dosage: 300 mg/m2, Cyclic
     Dates: start: 20100412, end: 20100419
  5. ASPIRIN [Concomitant]
     Indication: PRODUCT USED FOR UNKNOWN INDICATION
     Dosage: 81 mg, UNK
     Dates: end: 201004
  6. SYNTHYROID [Concomitant]
     Indication: HYPOTHYROIDISM
     Dosage: 125 ug, UNK
     Dates: end: 201004

REACTIONS (6)
  - Pulmonary embolism [Fatal]
  - Fall [None]
  - Tongue disorder [None]
  - Cardiomegaly [None]
  - Arteriosclerosis coronary artery [None]
  - Coronary artery stenosis [None]
